FAERS Safety Report 5571846-1 (Version None)
Quarter: 2007Q4

REPORT INFORMATION
  Report Type: 
  Country: None (occurrence: None)
  Receive Date: 20071221
  Receipt Date: 20071108
  Transmission Date: 20080405
  Serious: No
  Sender: FDA-Public Use
  Company Number: US-BAYER-US-2007-042729

PATIENT
  Age: 35 Year
  Sex: Female
  Weight: 102 kg

DRUGS (3)
  1. YAZ [Suspect]
     Indication: CONTRACEPTION
     Route: 048
     Dates: start: 20071008
  2. XANAX [Concomitant]
     Indication: NERVOUSNESS
  3. IBUPROFEN [Concomitant]
     Indication: HEADACHE

REACTIONS (4)
  - AGGRESSION [None]
  - HEADACHE [None]
  - LIBIDO DECREASED [None]
  - MOOD ALTERED [None]
